FAERS Safety Report 9174412 (Version 1)
Quarter: 2013Q1

REPORT INFORMATION
  Report Type: Spontaneous
  Country: US (occurrence: US)
  Receive Date: 20130320
  Receipt Date: 20130320
  Transmission Date: 20140127
  Serious: Yes (Other)
  Sender: FDA-Public Use
  Company Number: US-MYLANLABS-2012S1003378

PATIENT
  Age: 63 Year
  Sex: Female

DRUGS (7)
  1. ESTRADIOL TRANSDERMAL SYSTEM, USP [Suspect]
     Indication: MENOPAUSE
     Dosage: CHANGED QW
     Route: 062
     Dates: start: 20111123
  2. SYNTHROID [Concomitant]
  3. DIOVAN [Concomitant]
     Route: 048
  4. CENTRUM [Concomitant]
     Route: 048
  5. OMEGA 3 /00931501/ [Concomitant]
     Route: 048
  6. VITAMIN D [Concomitant]
     Route: 048
  7. VITAMIN B12 [Concomitant]
     Route: 048

REACTIONS (3)
  - Postmenopausal haemorrhage [Not Recovered/Not Resolved]
  - Dizziness [Not Recovered/Not Resolved]
  - Abdominal distension [Not Recovered/Not Resolved]
